FAERS Safety Report 7242952-0 (Version None)
Quarter: 2011Q1

REPORT INFORMATION
  Report Type: 
  Country: None (occurrence: None)
  Receive Date: 20110125
  Receipt Date: 20110114
  Transmission Date: 20110831
  Serious: No
  Sender: FDA-Public Use
  Company Number: US-JNJFOC-20101104209

PATIENT
  Sex: Male
  Weight: 121.56 kg

DRUGS (7)
  1. TRILAFON [Concomitant]
     Indication: SCHIZOAFFECTIVE DISORDER
     Route: 065
  2. OTHER THERAPEUTIC MEDICATION [Concomitant]
     Indication: MUSCLE SPASMS
     Route: 065
  3. TEGRETOL [Concomitant]
     Indication: SCHIZOAFFECTIVE DISORDER
     Route: 065
  4. INVEGA [Suspect]
     Indication: SCHIZOPHRENIA
     Dosage: 6 MG + 3 MG DAILY
     Route: 048
  5. ATIVAN [Concomitant]
     Indication: ANXIETY
     Route: 065
  6. TRAZODONE HCL [Concomitant]
     Indication: SLEEP DISORDER
     Route: 065
  7. TRILAFON [Concomitant]
     Dosage: HIGHER DOSE THAN NORMAL
     Route: 065

REACTIONS (1)
  - PENILE DISCHARGE [None]
